FAERS Safety Report 8077761-6 (Version None)
Quarter: 2012Q1

REPORT INFORMATION
  Report Type: 
  Country: None (occurrence: None)
  Receive Date: 20120127
  Receipt Date: 20120121
  Transmission Date: 20120608
  Serious: Yes (Hospitalization, Other)
  Sender: FDA-Public Use
  Company Number: US-ABBOTT-12P-163-0895921-00

PATIENT
  Sex: Female
  Weight: 70.37 kg

DRUGS (13)
  1. METOPROLOL TARTRATE [Concomitant]
     Indication: HYPERTENSION
  2. PRILOSEC [Concomitant]
     Indication: GASTROOESOPHAGEAL REFLUX DISEASE
  3. UNKNOWN MEDICATION [Concomitant]
     Indication: HYPERSENSITIVITY
  4. METHOTREXATE [Concomitant]
     Indication: RHEUMATOID ARTHRITIS
  5. ELAVIL [Concomitant]
     Indication: ANXIETY
  6. ESTROGEL [Concomitant]
     Indication: HORMONE REPLACEMENT THERAPY
  7. HUMIRA [Suspect]
     Indication: RHEUMATOID ARTHRITIS
  8. GABAPENTIN [Concomitant]
     Indication: NEUROPATHY PERIPHERAL
  9. AMBIEN [Concomitant]
     Indication: INSOMNIA
  10. GEMFIBROZIL [Concomitant]
     Indication: BLOOD CHOLESTEROL INCREASED
  11. FOLIC ACID [Concomitant]
     Indication: VITAMIN SUPPLEMENTATION
  12. NITROGLYCERIN [Concomitant]
     Indication: ANGINA PECTORIS
  13. HYDROCODONE [Concomitant]
     Indication: PAIN

REACTIONS (10)
  - ARTHRALGIA [None]
  - GAIT DISTURBANCE [None]
  - BLISTER [None]
  - PAIN IN EXTREMITY [None]
  - RASH [None]
  - SCAB [None]
  - ACNE [None]
  - VISUAL IMPAIRMENT [None]
  - OPEN WOUND [None]
  - ARTHRODESIS [None]
